FAERS Safety Report 5841836-X (Version None)
Quarter: 2008Q3

REPORT INFORMATION
  Report Type: 
  Country: None (occurrence: None)
  Receive Date: 20080812
  Receipt Date: 20080807
  Transmission Date: 20090109
  Serious: Yes (Hospitalization)
  Sender: FDA-Public Use
  Company Number: B0532273A

PATIENT
  Age: 67 Year
  Sex: Female

DRUGS (9)
  1. DEROXAT [Suspect]
     Indication: DRUG USE FOR UNKNOWN INDICATION
     Dosage: 20MG PER DAY
     Route: 048
     Dates: start: 20080219, end: 20080510
  2. STALEVO 100 [Suspect]
     Dosage: 50MG THREE TIMES PER DAY
     Route: 048
     Dates: start: 20080219, end: 20080510
  3. INIPOMP [Suspect]
     Dosage: 40MG PER DAY
     Route: 048
     Dates: start: 20080201, end: 20080510
  4. IMODIUM [Suspect]
     Dosage: 3UNIT PER DAY
     Route: 065
     Dates: end: 20080601
  5. REQUIP [Concomitant]
     Dosage: 8MG PER DAY
     Route: 048
  6. SINEMET [Concomitant]
     Dosage: 25MG PER DAY
     Route: 048
  7. CLOZAPINE [Concomitant]
     Dosage: 25MG PER DAY
     Route: 048
     Dates: start: 20080219
  8. XANAX [Concomitant]
     Route: 048
  9. DOMPERIDONE [Concomitant]

REACTIONS (5)
  - CHOLESTASIS [None]
  - DIARRHOEA [None]
  - FLUSHING [None]
  - HEPATOCELLULAR INJURY [None]
  - HYPOTENSION [None]
